FAERS Safety Report 5934262-6 (Version None)
Quarter: 2008Q4

REPORT INFORMATION
  Report Type: 
  Country: None (occurrence: None)
  Receive Date: 20081027
  Receipt Date: 20081013
  Transmission Date: 20090506
  Serious: Yes (Other)
  Sender: FDA-Public Use
  Company Number: SPV1-2008-02177

PATIENT
  Age: 53 Year
  Sex: Male
  Weight: 86.2 kg

DRUGS (3)
  1. ADDERALL XR 30 [Suspect]
     Indication: ATTENTION DEFICIT/HYPERACTIVITY DISORDER
     Dosage: 30 MG, 1X/DAY;QD, ORAL
     Route: 048
     Dates: start: 20080901, end: 20081008
  2. VYVANSE [Suspect]
     Indication: ATTENTION DEFICIT/HYPERACTIVITY DISORDER
     Dosage: 30 MG, 1X/DAY;QD, ORAL
     Route: 048
     Dates: start: 20080801, end: 20081008
  3. ADDERALL 10 [Suspect]
     Indication: ATTENTION DEFICIT/HYPERACTIVITY DISORDER
     Dosage: 30 MG, 1X/DAY;QD, ORAL
     Route: 048
     Dates: start: 20080101, end: 20081008

REACTIONS (4)
  - FLIGHT OF IDEAS [None]
  - GOUT [None]
  - INAPPROPRIATE SCHEDULE OF DRUG ADMINISTRATION [None]
  - INSOMNIA [None]
